FAERS Safety Report 25426843 (Version 3)
Quarter: 2025Q2

REPORT INFORMATION
  Report Type: Report from Study
  Country: US (occurrence: US)
  Receive Date: 20250612
  Receipt Date: 20250619
  Transmission Date: 20250717
  Serious: No
  Sender: SANDOZ
  Company Number: US-SANDOZ-SDZ2025US040852

PATIENT
  Age: 9 Year
  Sex: Female

DRUGS (4)
  1. OMNITROPE [Suspect]
     Active Substance: SOMATROPIN
     Indication: Short stature
     Dosage: 1.1 MG, QD
     Route: 058
     Dates: start: 202504
  2. OMNITROPE [Suspect]
     Active Substance: SOMATROPIN
     Indication: Short stature
     Dosage: 1.1 MG, QD
     Route: 058
     Dates: start: 202504
  3. OMNITROPE [Suspect]
     Active Substance: SOMATROPIN
     Dosage: 1.1 MG, QD,  END DATE = 16-JUN-2025
     Route: 058
     Dates: start: 20250509
  4. OMNITROPE [Suspect]
     Active Substance: SOMATROPIN
     Dosage: 1.1 MG, QD,  END DATE = 16-JUN-2025
     Route: 058
     Dates: start: 20250509

REACTIONS (7)
  - Fear of injection [Unknown]
  - Anxiety [Not Recovered/Not Resolved]
  - Injection site discomfort [Unknown]
  - Injection site pain [Unknown]
  - Product storage error [Unknown]
  - Device difficult to use [Unknown]
  - Product dispensing issue [Unknown]

NARRATIVE: CASE EVENT DATE: 20250401
